FAERS Safety Report 7714857-X (Version None)
Quarter: 2011Q3

REPORT INFORMATION
  Report Type: 
  Country: None (occurrence: None)
  Receive Date: 20110822
  Receipt Date: 20110817
  Transmission Date: 20111222
  Serious: Yes (Death)
  Sender: FDA-Public Use
  Company Number: 201111000

PATIENT
  Age: 53 Year
  Sex: Male

DRUGS (1)
  1. LIORESAL [Suspect]
     Indication: MUSCLE SPASTICITY
     Dosage: 300.1 MCG, DAILY, INTRATHECAL
     Route: 037

REACTIONS (2)
  - DEVICE CONNECTION ISSUE [None]
  - RESPIRATORY FAILURE [None]
